FAERS Safety Report 5401111-4 (Version None)
Quarter: 2007Q3

REPORT INFORMATION
  Report Type: 
  Country: None (occurrence: None)
  Receive Date: 20070731
  Receipt Date: 20070723
  Transmission Date: 20080115
  Serious: Yes (Hospitalization, Other)
  Sender: FDA-Public Use
  Company Number: PHBS2007BR12379

PATIENT
  Age: 81 Year
  Sex: Female
  Weight: 56 kg

DRUGS (5)
  1. PHYSIOTHERAPY [Concomitant]
     Route: 065
  2. EXELON [Suspect]
     Indication: DEMENTIA ALZHEIMER'S TYPE
     Dosage: 1.5 MG/D
     Route: 048
     Dates: start: 20050101
  3. EXELON [Suspect]
     Dosage: 3 MG/D
     Route: 048
  4. EXELON [Suspect]
     Dosage: 6 MG/D
     Route: 048
  5. EXELON [Suspect]
     Dosage: 6 MG, BID
     Route: 048
     Dates: start: 20070620

REACTIONS (7)
  - BALANCE DISORDER [None]
  - EATING DISORDER [None]
  - FALL [None]
  - FEELING ABNORMAL [None]
  - HYPOTENSION [None]
  - NERVOUSNESS [None]
  - SURGERY [None]
